FAERS Safety Report 9243201 (Version 1)
Quarter: 2013Q2

REPORT INFORMATION
  Report Type: Spontaneous
  Country: ES (occurrence: ES)
  Receive Date: 20130419
  Receipt Date: 20130419
  Transmission Date: 20140414
  Serious: Yes (Other)
  Sender: FDA-Public Use
  Company Number: PHHY2012ES032354

PATIENT
  Age: 54 Year
  Sex: Female
  Weight: 70.3 kg

DRUGS (17)
  1. ANAFRANIL [Suspect]
     Indication: OBSESSIVE-COMPULSIVE DISORDER
     Dosage: 37.5 MG, DAILY
     Route: 048
     Dates: start: 201101, end: 20110609
  2. ANAFRANIL [Interacting]
     Dosage: 100 MG, DAILY
     Route: 048
     Dates: end: 20110625
  3. ANAFRANIL [Interacting]
     Dosage: 75 MG, DAILY
     Route: 048
     Dates: start: 20110625
  4. SERTRALINA [Interacting]
     Indication: OBSESSIVE-COMPULSIVE DISORDER
     Dosage: 200 MG, DAILY
     Route: 048
     Dates: start: 201101
  5. RISPERIDONE [Interacting]
     Dosage: 5 MG, DAILY
     Dates: end: 20110109
  6. RISPERIDONE [Interacting]
     Dosage: 2.5 MG, UNK
     Dates: start: 20110323, end: 20110330
  7. RISPERIDONE [Interacting]
     Dosage: 15 MG, UNK
     Dates: end: 201107
  8. RISPERIDONE [Interacting]
     Dosage: 10 MG, UNK
     Dates: start: 201107
  9. ABILIFY [Interacting]
     Indication: OBSESSIVE-COMPULSIVE DISORDER
     Dosage: 2.5 MG, UNK
     Route: 048
     Dates: start: 20110323, end: 20110330
  10. ABILIFY [Interacting]
     Dosage: 5 MG, UNK
     Route: 048
     Dates: start: 20110330, end: 20110609
  11. ABILIFY [Interacting]
     Dosage: 15 MG, UNK
     Route: 048
     Dates: start: 20110609, end: 201107
  12. ABILIFY [Interacting]
     Dosage: 10 MG, UNK
     Route: 048
     Dates: start: 201107
  13. EVISTA [Interacting]
     Indication: OSTEOPOROSIS
     Dosage: 60 MG, DAILY
     Route: 048
     Dates: start: 201008
  14. NATECAL [Interacting]
     Indication: OSTEOPOROSIS
     Dosage: 600 MG, UNK
     Route: 048
     Dates: start: 201007
  15. CANADIOL [Interacting]
     Indication: VULVOVAGINAL CANDIDIASIS
     Dosage: 200 MG, DAILY
     Route: 048
     Dates: start: 201102, end: 20110830
  16. KETOISDIN [Interacting]
     Indication: VULVOVAGINAL CANDIDIASIS
     Dosage: 400 ML, DAILY
     Route: 067
     Dates: start: 20110326, end: 20110521
  17. FORTASEC [Interacting]
     Indication: DIARRHOEA
     Dosage: UNK UKN, PRN
     Dates: start: 2010

REACTIONS (2)
  - Weight increased [Not Recovered/Not Resolved]
  - Drug interaction [Not Recovered/Not Resolved]
